FAERS Safety Report 9134949 (Version 2)
Quarter: 2013Q1

REPORT INFORMATION
  Report Type: Spontaneous
  Country: US (occurrence: US)
  Receive Date: 20130304
  Receipt Date: 20130325
  Transmission Date: 20140127
  Serious: Yes (Other)
  Sender: FDA-Public Use
  Company Number: US-PFIZER INC-2013072093

PATIENT
  Age: 80 Year
  Sex: Male

DRUGS (1)
  1. LIPITOR [Suspect]
     Dosage: UNK

REACTIONS (10)
  - Amyotrophic lateral sclerosis [Unknown]
  - Amnesia [Unknown]
  - Transient global amnesia [Unknown]
  - Asthenia [Unknown]
  - Back pain [Recovered/Resolved]
  - Pain in extremity [Recovered/Resolved]
  - Muscular weakness [Unknown]
  - Spinal column stenosis [Unknown]
  - Mitochondrial DNA mutation [Unknown]
  - Fatigue [Unknown]
